FAERS Safety Report 17276127 (Version 1)
Quarter: 2020Q1

REPORT INFORMATION
  Report Type: Report from Study
  Country: GB (occurrence: GB)
  Receive Date: 20200116
  Receipt Date: 20200116
  Transmission Date: 20200409
  Serious: Yes (Other)
  Sender: FDA-Public Use
  Company Number: GB-EMD SERONO-9140028

PATIENT
  Sex: Female

DRUGS (1)
  1. REBIF [Suspect]
     Active Substance: INTERFERON BETA-1A
     Indication: MULTIPLE SCLEROSIS
     Dosage: REBIF 22MICROGRAMS/0.5ML (6MILLION UNITS) SOLUTION FOR INJECTION PRE-FILLED SYRINGES (REBIJECT)
     Route: 058

REACTIONS (1)
  - Spinal disorder [Not Recovered/Not Resolved]
